FAERS Safety Report 8071536-X (Version None)
Quarter: 2012Q1

REPORT INFORMATION
  Report Type: 
  Country: None (occurrence: None)
  Receive Date: 20120125
  Receipt Date: 20120117
  Transmission Date: 20120608
  Serious: Yes (Life-Threatening, Other)
  Sender: FDA-Public Use
  Company Number: US-ROXANE LABORATORIES, INC.-2012-RO-00489RO

PATIENT
  Age: 59 Year
  Sex: Female
  Weight: 87 kg

DRUGS (7)
  1. ASCORBIC ACID [Concomitant]
  2. VITAMIN E [Concomitant]
  3. METHADONE HCL [Suspect]
     Dosage: 6 MG
     Route: 042
  4. LETROZOLE [Suspect]
     Dosage: 2.5 MG
     Route: 048
  5. CALCIUM [Concomitant]
  6. VITAMIN D [Concomitant]
  7. VITAMIN B6 [Concomitant]

REACTIONS (6)
  - RESPIRATORY DEPRESSION [None]
  - NAUSEA [None]
  - DRUG EFFECT INCREASED [None]
  - SOMNOLENCE [None]
  - HYPOTENSION [None]
  - HEADACHE [None]
